FAERS Safety Report 5177052-7 (Version None)
Quarter: 2006Q4

REPORT INFORMATION
  Report Type: 
  Country: None (occurrence: None)
  Receive Date: 20061218
  Receipt Date: 20061207
  Transmission Date: 20070319
  Serious: Yes (Hospitalization)
  Sender: FDA-Public Use
  Company Number: IT-GLAXOSMITHKLINE-B0450123A

PATIENT
  Age: 57 Year
  Sex: Female

DRUGS (2)
  1. AMOXYCILLIN + CLAVULANIC ACID [Suspect]
     Indication: TOOTH ABSCESS
     Dosage: 1MG PER DAY
     Dates: start: 20061130, end: 20061130
  2. NIMESULIDE [Suspect]
     Indication: TOOTH ABSCESS
     Dosage: 100MG PER DAY
     Route: 048
     Dates: start: 20061130, end: 20061130

REACTIONS (1)
  - ANAPHYLACTIC SHOCK [None]
